FAERS Safety Report 19468786 (Version 8)
Quarter: 2023Q2

REPORT INFORMATION
  Report Type: Spontaneous
  Country: US (occurrence: US)
  Receive Date: 20210628
  Receipt Date: 20230601
  Transmission Date: 20230721
  Serious: Yes (Other)
  Sender: FDA-Public Use
  Company Number: US-PFIZER INC-2021600531

PATIENT
  Age: 76 Year
  Sex: Female

DRUGS (5)
  1. IBRANCE [Suspect]
     Active Substance: PALBOCICLIB
     Indication: Breast cancer female
     Dosage: 100 MG, CYCLIC  (ONCE DAILY FOR 3 WEEKS, 1 WEEK OFF))
     Route: 048
     Dates: start: 2020
  2. ATOVAN [Concomitant]
     Dosage: UNK
  3. GABAPENTIN [Concomitant]
     Active Substance: GABAPENTIN
     Dosage: UNK
  4. MILK OF MAGNESIA [Concomitant]
     Active Substance: MAGNESIUM HYDROXIDE
     Dosage: UNK , 1X/DAY (EVERY NIGHT)
  5. MILK OF MAGNESIA [Concomitant]
     Active Substance: MAGNESIUM HYDROXIDE
     Dosage: UNK, AS NEEDED

REACTIONS (6)
  - Spinal operation [Unknown]
  - Illness [Unknown]
  - Confusional state [Unknown]
  - Feeling abnormal [Unknown]
  - Nervousness [Unknown]
  - Panic reaction [Unknown]
